FAERS Safety Report 8815138 (Version 2)
Quarter: 2012Q4

REPORT INFORMATION
  Report Type: Report from Study
  Country: JP (occurrence: JP)
  Receive Date: 20120928
  Receipt Date: 20121120
  Transmission Date: 20130627
  Serious: Yes (Hospitalization)
  Sender: FDA-Public Use
  Company Number: JP-VERTEX PHARMACEUTICAL INC.-2012-021905

PATIENT
  Age: 36 Year
  Sex: Female

DRUGS (12)
  1. VX-950 (TELAPREVIR) [Suspect]
     Indication: CHRONIC HEPATITIS C
     Dosage: 1500 mg, qd
     Route: 048
     Dates: start: 20120321, end: 20120613
  2. REBETOL [Suspect]
     Indication: CHRONIC HEPATITIS C
     Dosage: 400 mg, qd
     Route: 048
     Dates: start: 20120321, end: 20120417
  3. REBETOL [Suspect]
     Dosage: 200 mg, qd
     Route: 048
     Dates: start: 20120418, end: 20120904
  4. PEGINTRON                          /01543001/ [Suspect]
     Indication: CHRONIC HEPATITIS C
     Dosage: 1.5 UNK, UNK
     Route: 058
     Dates: start: 20120321, end: 20120411
  5. PEGINTRON                          /01543001/ [Suspect]
     Dosage: 0.75 ?g/kg, qw
     Route: 058
     Dates: start: 20120418, end: 20120509
  6. PEGINTRON                          /01543001/ [Suspect]
     Dosage: 0.94 ?g/kg, qw
     Route: 058
     Dates: start: 20120516, end: 20120516
  7. PEGINTRON                          /01543001/ [Suspect]
     Dosage: 1.13 ?g/kg, qw
     Route: 058
     Dates: start: 20120523, end: 20120523
  8. PEGINTRON                          /01543001/ [Suspect]
     Dosage: 1.5 ?g/kg, qw
     Route: 058
     Dates: start: 20120530, end: 20120808
  9. PEGINTRON                          /01543001/ [Suspect]
     Dosage: 0.75 ?g/kg, qw
     Route: 058
     Dates: start: 20120815, end: 20120815
  10. PEGINTRON                          /01543001/ [Suspect]
     Dosage: 1.125 ?g/kg, qw
     Route: 058
     Dates: start: 20120822, end: 20120905
  11. FLOMOX [Concomitant]
     Dosage: 300 mg, qd
     Route: 048
     Dates: start: 20120319, end: 20120322
  12. MEROPEN                            /01250501/ [Concomitant]
     Dosage: 1 g, qd
     Route: 042
     Dates: start: 20120809, end: 20120813

REACTIONS (1)
  - Sepsis [Recovered/Resolved]
